FAERS Safety Report 19894316 (Version 2)
Quarter: 2021Q3

REPORT INFORMATION
  Report Type: Report from Study
  Country: US (occurrence: US)
  Receive Date: 20210928
  Receipt Date: 20210930
  Transmission Date: 20211014
  Serious: No
  Sender: FDA-Public Use
  Company Number: US-B.I. PHARMACEUTICALS,INC./RIDGEFIELD-2021-BI-121949

PATIENT
  Age: 81 Year
  Sex: Male

DRUGS (2)
  1. OFEV [Suspect]
     Active Substance: NINTEDANIB
     Indication: PRODUCT USED FOR UNKNOWN INDICATION
     Dosage: 150 MG BID
     Route: 048
     Dates: start: 20210815
  2. OFEV [Suspect]
     Active Substance: NINTEDANIB
     Indication: IDIOPATHIC PULMONARY FIBROSIS

REACTIONS (10)
  - Sleep apnoea syndrome [Not Recovered/Not Resolved]
  - Feeling of relaxation [Not Recovered/Not Resolved]
  - Blood pressure increased [Recovering/Resolving]
  - Hypertension [Not Recovered/Not Resolved]
  - Diarrhoea [Not Recovered/Not Resolved]
  - Abdominal pain upper [Unknown]
  - Hypertension [Recovered/Resolved]
  - Abdominal pain upper [Recovered/Resolved]
  - Blood pressure increased [Not Recovered/Not Resolved]
  - Hypoxia [Not Recovered/Not Resolved]

NARRATIVE: CASE EVENT DATE: 202107
